FAERS Safety Report 4492662-8 (Version None)
Quarter: 2004Q4

REPORT INFORMATION
  Report Type: 
  Country: None (occurrence: None)
  Receive Date: 20041102
  Receipt Date: 20041102
  Transmission Date: 20050328
  Serious: Yes (Hospitalization)
  Sender: FDA-Public Use
  Company Number: None

PATIENT
  Sex: Female
  Weight: 75.7507 kg

DRUGS (6)
  1. REMODULIN [Suspect]
     Indication: PULMONARY HYPERTENSION
     Dosage: 62 NG/KG/KG/MIN
     Dates: start: 20040601
  2. NORVASC [Concomitant]
  3. WARFARIN SODIUM [Concomitant]
  4. LASIX [Concomitant]
  5. ZAROXOLYN [Concomitant]
  6. ZESTRIL [Concomitant]

REACTIONS (3)
  - OEDEMA [None]
  - TREATMENT NONCOMPLIANCE [None]
  - WEIGHT INCREASED [None]
